FAERS Safety Report 19989395 (Version 1)
Quarter: 2021Q4

REPORT INFORMATION
  Report Type: Spontaneous
  Country: FR (occurrence: FR)
  Receive Date: 20211025
  Receipt Date: 20211025
  Transmission Date: 20220303
  Serious: Yes (Congenital Anomaly, Other)
  Sender: FDA-Public Use
  Company Number: FR-ABBVIE-21K-056-4126554-00

PATIENT
  Sex: Male
  Weight: 3.24 kg

DRUGS (3)
  1. VALPROATE SODIUM [Suspect]
     Active Substance: VALPROATE SODIUM
     Indication: Maternal exposure timing unspecified
     Route: 064
  2. TOPIRAMATE [Suspect]
     Active Substance: TOPIRAMATE
     Indication: Maternal exposure timing unspecified
     Route: 064
  3. FOLIC ACID [Concomitant]
     Active Substance: FOLIC ACID
     Indication: Product used for unknown indication

REACTIONS (48)
  - Dysmorphism [Unknown]
  - Otospondylomegaepiphyseal dysplasia [Unknown]
  - Eye disorder [Unknown]
  - Hypertelorism [Unknown]
  - Bradycardia [Unknown]
  - Non-compaction cardiomyopathy [Unknown]
  - Inguinal hernia [Unknown]
  - Hypertonia [Unknown]
  - Hypotonia [Unknown]
  - Fall [Unknown]
  - Musculoskeletal stiffness [Unknown]
  - Gastrooesophageal reflux disease [Unknown]
  - Myopia [Unknown]
  - Fatigue [Unknown]
  - Dyspraxia [Unknown]
  - Penile curvature [Unknown]
  - Strabismus [Unknown]
  - Cleft palate [Unknown]
  - Speech disorder developmental [Unknown]
  - Ear infection [Unknown]
  - Posture abnormal [Unknown]
  - Dysgraphia [Unknown]
  - Psychiatric symptom [Unknown]
  - Fine motor skill dysfunction [Unknown]
  - Malocclusion [Unknown]
  - Attention deficit hyperactivity disorder [Unknown]
  - Memory impairment [Unknown]
  - Learning disorder [Unknown]
  - Hypotonia [Unknown]
  - Enuresis [Unknown]
  - Dyspraxia [Unknown]
  - Speech disorder [Unknown]
  - Left ventricular dilatation [Unknown]
  - Disturbance in attention [Unknown]
  - Agitation [Unknown]
  - Bradykinesia [Unknown]
  - Impulsive behaviour [Unknown]
  - Fear [Unknown]
  - Motor dysfunction [Unknown]
  - Visuospatial deficit [Unknown]
  - Salivary hypersecretion [Unknown]
  - Nasopharyngitis [Unknown]
  - Ear infection [Unknown]
  - Personal relationship issue [Unknown]
  - Psychiatric symptom [Unknown]
  - Scarlet fever [Unknown]
  - Scoliosis [Unknown]
  - Foetal exposure during pregnancy [Unknown]
